FAERS Safety Report 24273918 (Version 1)
Quarter: 2024Q3

REPORT INFORMATION
  Report Type: Spontaneous
  Country: US (occurrence: US)
  Receive Date: 20240902
  Receipt Date: 20240902
  Transmission Date: 20241017
  Serious: No
  Sender: ASTELLAS
  Company Number: US-ASTELLAS-2024US022357

PATIENT
  Age: 76 Year
  Sex: Male

DRUGS (3)
  1. XTANDI [Suspect]
     Active Substance: ENZALUTAMIDE
     Indication: Product used for unknown indication
     Dosage: 160 MG, UNKNOWN FREQ.
     Route: 065
     Dates: start: 20240101
  2. OFEV [Suspect]
     Active Substance: NINTEDANIB
     Indication: Product used for unknown indication
     Dosage: 100 MG, EVERY 12 HOURS
     Route: 048
     Dates: start: 20231114, end: 202311
  3. OFEV [Suspect]
     Active Substance: NINTEDANIB
     Dosage: 100 MG, ONCE DAILY
     Route: 048
     Dates: start: 202311

REACTIONS (1)
  - Confusional state [Not Recovered/Not Resolved]
